FAERS Safety Report 8117114 (Version 2)
Quarter: 2014Q2

REPORT INFORMATION
  Report Type: Spontaneous
  Country: US (occurrence: None)
  Receive Date: 20110823
  Receipt Date: 20140604
  Transmission Date: 20141212
  Serious: Yes (Hospitalization)
  Sender: FDA-Public Use
  Company Number: 20110411CINRY1939

PATIENT
  Age: 54 Year
  Sex: Female

DRUGS (32)
  1. CINRYZE [Suspect]
     Indication: HEREDITARY ANGIOEDEMA
     Dosage: (1000 UNIT, 1 IN 4 D)
     Dates: start: 20110223
  2. CINRYZE [Suspect]
     Indication: PROPHYLAXIS
     Dosage: (1000 UNIT, 1 IN 4 D)
     Dates: start: 20110223
  3. XANAX (ALPRAZOLAM) [Concomitant]
  4. ZOFRAN (IBUPROFEN) [Concomitant]
  5. VITAMIN D3 (COLECALCIFEROL) [Concomitant]
  6. ACYCLOVIR [Concomitant]
  7. ADVAIR DISKUS [Concomitant]
  8. ALBUTEROL MDI (SALBUTAMOL) [Concomitant]
  9. CALCIUM CARBONATE [Concomitant]
  10. COLACE [Concomitant]
  11. COUMADIN [Concomitant]
  12. CYMBALTA [Concomitant]
  13. DEPAKOTE [Concomitant]
  14. DUONEBS (COMBIVENT /01261001/) [Concomitant]
  15. EPIPEN [Concomitant]
  16. ERA-TAB [Concomitant]
  17. FLONASE [Concomitant]
  18. GLUCOSAMINE SULFATE (GLUCOSAMINE SULFATE) [Concomitant]
  19. HYDROCHLOROTHIAZIDE (HYDROCHLOROTHIAZIDE) [Concomitant]
  20. LEVOTHYROXINE SODIUM [Concomitant]
  21. KLOR-CON [Concomitant]
  22. LIDODERM PATCH 5% (LIDOCAINE) [Concomitant]
  23. METAMUCIL (PLANTAGO OVATA) [Concomitant]
  24. METHADONE HYDROCHLORIDE [Concomitant]
  25. NEURONTIN [Concomitant]
  26. OXYGEN (OXYGEN) [Concomitant]
  27. PERCOCET [Concomitant]
  28. PHENERGAN [Concomitant]
  29. PREMARIN [Concomitant]
  30. PROTONIX [Concomitant]
  31. SINGULAIR [Concomitant]
  32. TRAZODONE HYDROCHLORIDE [Concomitant]

REACTIONS (4)
  - Hereditary angioedema [None]
  - Condition aggravated [None]
  - Off label use [None]
  - Stress [None]
